FAERS Safety Report 14914923 (Version 1)
Quarter: 2018Q2

REPORT INFORMATION
  Report Type: Report from Study
  Country: US (occurrence: US)
  Receive Date: 20180518
  Receipt Date: 20180518
  Transmission Date: 20180711
  Serious: Yes (Other)
  Sender: FDA-Public Use
  Company Number: US-ARIAD PHARMACEUTICALS, INC-2017US008171

PATIENT
  Sex: Male

DRUGS (3)
  1. PONATINIB [Suspect]
     Active Substance: PONATINIB
     Indication: MYELOID LEUKAEMIA
     Dosage: 15 MG, QD
     Route: 048
     Dates: start: 20170406
  2. PONATINIB [Suspect]
     Active Substance: PONATINIB
     Dosage: 45 MG, QD
     Route: 048
  3. PONATINIB [Suspect]
     Active Substance: PONATINIB
     Dosage: 45 MG, QD
     Route: 048

REACTIONS (15)
  - Goitre [Unknown]
  - Gastrointestinal haemorrhage [Unknown]
  - Platelet count abnormal [Unknown]
  - Drug ineffective [Unknown]
  - Arteriosclerosis [Unknown]
  - Lymphocyte count abnormal [Unknown]
  - Nausea [Not Recovered/Not Resolved]
  - Constipation [Unknown]
  - Labelled drug-food interaction medication error [Unknown]
  - Protein total increased [Unknown]
  - Skin disorder [Unknown]
  - Therapeutic response decreased [Unknown]
  - Neck mass [Unknown]
  - Blood pressure increased [Unknown]
  - Rash [Unknown]
